FAERS Safety Report 9172524 (Version 1)
Quarter: 2012Q4

REPORT INFORMATION
  Report Type: 
  Country: US (occurrence: US)
  Receive Date: 20120911
  Receipt Date: 20120911
  Transmission Date: 20130627
  Serious: No
  Sender: FDA-Public Use
  Company Number: US-ASTRAZENECA-2012SE65208

PATIENT
  Age: 58 Year
  Sex: Male

DRUGS (5)
  1. BRILINTA [Suspect]
     Route: 048
  2. BETA-BLOCKER [Concomitant]
  3. ACE INHIBITOR [Concomitant]
  4. AMIODARONE [Concomitant]
  5. SEVERAL MEDICATIONS [Concomitant]

REACTIONS (2)
  - Drug intolerance [Unknown]
  - Dyspnoea [Unknown]
